FAERS Safety Report 15588607 (Version 9)
Quarter: 2021Q1

REPORT INFORMATION
  Report Type: Spontaneous
  Country: DE (occurrence: DE)
  Receive Date: 20181106
  Receipt Date: 20210306
  Transmission Date: 20210419
  Serious: Yes (Hospitalization)
  Sender: FDA-Public Use
  Company Number: PHHY2018DE144414

PATIENT
  Age: 75 Year
  Sex: Female

DRUGS (35)
  1. DEXAMETHASONE. [Suspect]
     Active Substance: DEXAMETHASONE
     Dosage: 20MG
     Route: 065
     Dates: start: 20170303
  2. CALCIUM [Concomitant]
     Active Substance: CALCIUM
     Indication: CALCIUM DEFICIENCY
     Dosage: 2 DF
     Route: 065
     Dates: start: 20170925
  3. PANTOZOL [Concomitant]
     Active Substance: PANTOPRAZOLE SODIUM
     Indication: PROPHYLAXIS AGAINST GASTROINTESTINAL ULCER
     Dosage: 20MG
     Route: 065
     Dates: start: 20160110
  4. MORPHINE SULFATE. [Concomitant]
     Active Substance: MORPHINE SULFATE
     Indication: METASTASES TO BONE
     Dosage: UNK (10?80 MG)
     Route: 058
     Dates: start: 20170712, end: 20170823
  5. FOLIC ACID. [Concomitant]
     Active Substance: FOLIC ACID
     Indication: PROPHYLAXIS
     Dosage: 5 MG
     Route: 065
     Dates: start: 20171007
  6. POMALIDOMIDE [Suspect]
     Active Substance: POMALIDOMIDE
     Indication: PLASMA CELL MYELOMA
     Dosage: UNK
     Route: 065
  7. POMALIDOMIDE [Suspect]
     Active Substance: POMALIDOMIDE
     Dosage: 2 MG
     Route: 048
  8. POMALIDOMIDE [Suspect]
     Active Substance: POMALIDOMIDE
     Dosage: 4 MG
     Route: 048
  9. MORPHINE SULFATE. [Concomitant]
     Active Substance: MORPHINE SULFATE
     Dosage: 120 MG
     Route: 048
     Dates: start: 20170424, end: 20170925
  10. AMITRIPTYLIN [Concomitant]
     Active Substance: AMITRIPTYLINE
     Indication: PAIN
     Dosage: 25 MG
     Route: 065
     Dates: start: 20171016
  11. DRONABINOL. [Concomitant]
     Active Substance: DRONABINOL
     Indication: METASTASES TO BONE
     Dosage: UNK
     Route: 065
  12. DEXAMETHASONE. [Suspect]
     Active Substance: DEXAMETHASONE
     Dosage: 20MG
     Route: 065
     Dates: start: 20170310
  13. DEXAMETHASONE. [Suspect]
     Active Substance: DEXAMETHASONE
     Dosage: 20 MG, QW
     Route: 065
     Dates: start: 20170915
  14. POMALIDOMIDE [Suspect]
     Active Substance: POMALIDOMIDE
     Dosage: 2 MG
     Route: 048
     Dates: start: 20170915
  15. DEXAMETHASONE. [Suspect]
     Active Substance: DEXAMETHASONE
     Dosage: 20 MG, QW
     Route: 065
     Dates: start: 20170224, end: 20170317
  16. NOVAMINSULFON [Concomitant]
     Active Substance: METAMIZOLE
     Dosage: 4G
     Route: 065
     Dates: start: 20160110
  17. MORPHINE SULFATE. [Concomitant]
     Active Substance: MORPHINE SULFATE
     Indication: PAIN
     Dosage: 120 MG, UNK
     Route: 048
  18. FOLIC ACID. [Concomitant]
     Active Substance: FOLIC ACID
     Indication: FOLATE DEFICIENCY
     Dosage: UNK
     Route: 065
  19. AMITRIPTYLIN [Concomitant]
     Active Substance: AMITRIPTYLINE
     Indication: PAIN
     Dosage: 50 MG
     Route: 065
     Dates: start: 20170824, end: 20171015
  20. DEXAMETHASONE. [Suspect]
     Active Substance: DEXAMETHASONE
     Dosage: 20 MG, QW
     Route: 065
     Dates: start: 20170825
  21. POMALIDOMIDE [Suspect]
     Active Substance: POMALIDOMIDE
     Dosage: 4MG
     Route: 048
     Dates: start: 20170224, end: 20170317
  22. AMPHOTERICIN [Concomitant]
     Active Substance: AMPHOTERICIN B
     Indication: ANTIFUNGAL PROPHYLAXIS
     Dosage: 5 DF
     Route: 055
  23. AMPHOTERICIN [Concomitant]
     Active Substance: AMPHOTERICIN B
     Dosage: 5 DF, (5 PUFF)
     Route: 055
     Dates: start: 20171006
  24. DRONABINOL. [Concomitant]
     Active Substance: DRONABINOL
     Indication: PAIN
     Dosage: 2.5 MG
     Route: 065
     Dates: start: 20170711, end: 20170823
  25. MOVICOL [Concomitant]
     Active Substance: POLYETHYLENE GLYCOL 3350\POTASSIUM CHLORIDE\SODIUM BICARBONATE\SODIUM CHLORIDE
     Indication: CONSTIPATION
     Dosage: 1 DF
     Route: 065
     Dates: start: 20170316
  26. POMALIDOMIDE [Suspect]
     Active Substance: POMALIDOMIDE
     Dosage: 2 MG
     Route: 048
     Dates: start: 20170825
  27. DEXAMETHASONE. [Suspect]
     Active Substance: DEXAMETHASONE
     Indication: PLASMA CELL MYELOMA
     Dosage: 20 MG
     Route: 065
  28. DEXAMETHASONE. [Suspect]
     Active Substance: DEXAMETHASONE
     Dosage: 20MG
     Route: 065
     Dates: start: 20170317
  29. NOVAMINSULFON [Concomitant]
     Active Substance: METAMIZOLE
     Indication: PAIN
     Dosage: 4 G, 10QD
     Route: 065
     Dates: start: 20160110
  30. MORPHINE SULFATE. [Concomitant]
     Active Substance: MORPHINE SULFATE
     Indication: PAIN
     Dosage: 70 MG
     Route: 058
     Dates: start: 2016, end: 20170315
  31. AMITRIPTYLIN [Concomitant]
     Active Substance: AMITRIPTYLINE
     Indication: METASTASES TO BONE
     Dosage: 25 MG
     Route: 065
     Dates: start: 20170316, end: 20170823
  32. HYDROMORPHONE [Concomitant]
     Active Substance: HYDROMORPHONE
     Indication: PAIN
     Dosage: UNK
     Route: 065
  33. HYDROMORPHONE [Concomitant]
     Active Substance: HYDROMORPHONE
     Indication: PAIN
     Dosage: 60 MG, QD
     Route: 065
     Dates: start: 20170925
  34. HYDROMORPHONE [Concomitant]
     Active Substance: HYDROMORPHONE
     Dosage: UNK
     Route: 065
     Dates: start: 20171007
  35. CALCIUM [Concomitant]
     Active Substance: CALCIUM
     Indication: PROPHYLAXIS

REACTIONS (9)
  - Leukopenia [Recovered/Resolved]
  - Spinal pain [Recovered/Resolved]
  - Osteolysis [Recovered/Resolved]
  - Neutropenia [Recovered/Resolved]
  - Spinal pain [Recovered/Resolved]
  - Spinal pain [Recovered/Resolved]
  - Leukopenia [Not Recovered/Not Resolved]
  - Spinal pain [Recovered/Resolved]
  - Leukopenia [Not Recovered/Not Resolved]

NARRATIVE: CASE EVENT DATE: 20170316
